FAERS Safety Report 6209512-1 (Version None)
Quarter: 2009Q2

REPORT INFORMATION
  Report Type: 
  Country: None (occurrence: None)
  Receive Date: 20090601
  Receipt Date: 20090527
  Transmission Date: 20091009
  Serious: Yes (Life-Threatening, Hospitalization, Other)
  Sender: FDA-Public Use
  Company Number: PHHY2009ES20427

PATIENT
  Age: 73 Year
  Sex: Female

DRUGS (6)
  1. SINTROM UNO [Suspect]
     Indication: CARDIAC VALVE PROSTHESIS USER
     Dosage: UNK
     Route: 048
     Dates: start: 20020101, end: 20090204
  2. DIOVAN [Suspect]
     Indication: CARDIAC FAILURE
     Dosage: 160 MG, QD
     Route: 048
  3. DIGOXIN [Suspect]
     Dosage: 1.25 MG, QD
     Route: 048
  4. ORFIDAL [Concomitant]
     Dosage: 1 MG, QD
     Route: 048
  5. SEGURIL [Concomitant]
     Indication: CARDIAC FAILURE
     Dosage: 40 MG, QD
     Route: 048
  6. TARDYFERON [Concomitant]
     Indication: ANAEMIA
     Route: 048

REACTIONS (7)
  - BLOOD CREATININE INCREASED [None]
  - BLOOD UREA INCREASED [None]
  - DUODENAL ULCER HAEMORRHAGE [None]
  - HAEMATOCRIT DECREASED [None]
  - INTERNATIONAL NORMALISED RATIO INCREASED [None]
  - MELAENA [None]
  - RECTAL HAEMORRHAGE [None]
